FAERS Safety Report 9685655 (Version 1)
Quarter: 2013Q4

REPORT INFORMATION
  Report Type: Spontaneous
  Country: US (occurrence: US)
  Receive Date: 20131113
  Receipt Date: 20131113
  Transmission Date: 20140711
  Serious: No
  Sender: FDA-Public Use
  Company Number: US-GLAXOSMITHKLINE-A1038940A

PATIENT
  Sex: Female

DRUGS (4)
  1. COREG [Suspect]
     Indication: HYPERTENSION
     Route: 065
  2. CAPTOPRIL [Suspect]
     Indication: HYPERTENSION
     Route: 065
     Dates: start: 201307
  3. LISINOPRIL [Suspect]
     Indication: HYPERTENSION
     Route: 065
  4. DIOVAN [Concomitant]

REACTIONS (2)
  - Cough [Unknown]
  - Regurgitation [Unknown]
